FAERS Safety Report 23425224 (Version 1)
Quarter: 2024Q1

REPORT INFORMATION
  Report Type: Spontaneous
  Country: JP (occurrence: JP)
  Receive Date: 20240121
  Receipt Date: 20240121
  Transmission Date: 20240410
  Serious: Yes (Death, Hospitalization)
  Sender: FDA-Public Use
  Company Number: JP-NOVOPROD-1154930

PATIENT
  Age: 8 Decade
  Sex: Male

DRUGS (2)
  1. TRESIBA [Suspect]
     Active Substance: INSULIN DEGLUDEC
     Indication: Pancreatogenous diabetes
     Dosage: UNK
     Route: 058
  2. APIDRA [Concomitant]
     Active Substance: INSULIN GLULISINE
     Indication: Pancreatogenous diabetes
     Dosage: UNK

REACTIONS (3)
  - Metabolic encephalopathy [Fatal]
  - Hypoglycaemic coma [Recovered/Resolved]
  - Decreased appetite [Unknown]
